FAERS Safety Report 18205637 (Version 1)
Quarter: 2020Q3

REPORT INFORMATION
  Report Type: Spontaneous
  Country: IE (occurrence: IE)
  Receive Date: 20200828
  Receipt Date: 20200828
  Transmission Date: 20201103
  Serious: Yes (Other)
  Sender: FDA-Public Use
  Company Number: IE-ACCORD-197534

PATIENT
  Sex: Female

DRUGS (1)
  1. METHOFILL [Suspect]
     Active Substance: METHOTREXATE SODIUM
     Indication: ARTHRITIS
     Route: 030
     Dates: start: 201912

REACTIONS (2)
  - Product dose omission issue [Unknown]
  - Product use issue [Unknown]
